FAERS Safety Report 15862916 (Version 2)
Quarter: 2019Q1

REPORT INFORMATION
  Report Type: Report from Study
  Country: DE (occurrence: DE)
  Receive Date: 20190124
  Receipt Date: 20190207
  Transmission Date: 20190417
  Serious: Yes (Death, Other)
  Sender: FDA-Public Use
  Company Number: DE-TAKEDA-2018TUS027663

PATIENT
  Age: 59 Year
  Sex: Male

DRUGS (1)
  1. BRIGATINIB [Suspect]
     Active Substance: BRIGATINIB
     Indication: NON-SMALL CELL LUNG CANCER
     Dosage: UNK
     Route: 065
     Dates: start: 201806, end: 201811

REACTIONS (3)
  - Hepatic failure [Fatal]
  - Cough [Unknown]
  - Non-small cell lung cancer [Fatal]

NARRATIVE: CASE EVENT DATE: 201811
